FAERS Safety Report 11027723 (Version 2)
Quarter: 2015Q2

REPORT INFORMATION
  Report Type: Spontaneous
  Country: US (occurrence: US)
  Receive Date: 20150414
  Receipt Date: 20150525
  Transmission Date: 20150821
  Serious: No
  Sender: FDA-Public Use
  Company Number: US-JNJFOC-20140117940

PATIENT
  Age: 26 Year
  Sex: Female
  Weight: 54.43 kg

DRUGS (1)
  1. ORTHO TRI CYCLEN LO [Suspect]
     Active Substance: ETHINYL ESTRADIOL\NORGESTIMATE
     Indication: MENSTRUAL DISORDER
     Dosage: ABOUT 7 YEARS AGO
     Route: 048

REACTIONS (2)
  - Product use issue [Unknown]
  - Incorrect dose administered [Not Recovered/Not Resolved]

NARRATIVE: CASE EVENT DATE: 20140127
